FAERS Safety Report 20954524 (Version 2)
Quarter: 2024Q3

REPORT INFORMATION
  Report Type: Spontaneous
  Country: US (occurrence: US)
  Receive Date: 20220614
  Receipt Date: 20240712
  Transmission Date: 20241016
  Serious: No
  Sender: PIERRE FABRE MEDICAMENT
  Company Number: US-PFM-2021-10854

PATIENT
  Sex: Female
  Weight: 8.39 kg

DRUGS (3)
  1. HEMANGEOL [Suspect]
     Active Substance: PROPRANOLOL HYDROCHLORIDE
     Indication: Haemangioma
     Dosage: 1.2ML BY MOUTH 2 TIMES DAILY
     Route: 048
  2. HEMANGEOL [Suspect]
     Active Substance: PROPRANOLOL HYDROCHLORIDE
     Dosage: INCREASE TO 2.4ML BY MOUTH 2 TIMES DAILY
     Route: 048
  3. HEMANGEOL [Suspect]
     Active Substance: PROPRANOLOL HYDROCHLORIDE
     Dosage: INCREASE TO 3.2ML BY MOUTH 2 TIMES DAILY FOR MAINTENANE DOSING
     Route: 048

REACTIONS (1)
  - Sleep terror [Not Recovered/Not Resolved]
